FAERS Safety Report 6382325-6 (Version None)
Quarter: 2009Q3

REPORT INFORMATION
  Report Type: 
  Country: None (occurrence: None)
  Receive Date: 20090928
  Receipt Date: 20090928
  Transmission Date: 20100115
  Serious: Yes (Hospitalization, Disabling, Other)
  Sender: FDA-Public Use
  Company Number: None

PATIENT
  Age: 44 Year
  Sex: Female
  Weight: 100.6985 kg

DRUGS (4)
  1. ENBREL [Suspect]
     Indication: RHEUMATOID ARTHRITIS
     Dosage: 25MG X2 TWICE WEEK (100 MG WK)  2X WK INJECTION
     Route: 042
     Dates: start: 19980101, end: 20000101
  2. ENBREL [Suspect]
     Dosage: 25MG TWICE WK INJECTION TOTAL 50/WK
     Route: 042
     Dates: start: 20010101, end: 20090101
  3. METHOTREXATE [Concomitant]
  4. PREDNISONE [Concomitant]

REACTIONS (7)
  - DIZZINESS [None]
  - FATIGUE [None]
  - HERPES ZOSTER [None]
  - MENIERE'S DISEASE [None]
  - MUSCLE SPASMS [None]
  - OPTIC NEURITIS [None]
  - VERTIGO [None]
